FAERS Safety Report 7967336-9 (Version None)
Quarter: 2011Q4

REPORT INFORMATION
  Report Type: 
  Country: None (occurrence: None)
  Receive Date: 20111209
  Receipt Date: 20111130
  Transmission Date: 20120403
  Serious: Yes (Hospitalization)
  Sender: FDA-Public Use
  Company Number: US-US-EMD SERONO, INC.-7099295

PATIENT
  Sex: Female
  Weight: 61 kg

DRUGS (6)
  1. ZANAFLEX [Concomitant]
     Indication: MUSCLE SPASMS
  2. BACLOFEN [Concomitant]
     Indication: MULTIPLE SCLEROSIS
  3. INDERAL [Concomitant]
     Indication: ESSENTIAL TREMOR
  4. LEVOXYL [Concomitant]
     Indication: HYPOTHYROIDISM
  5. FLOMAX [Concomitant]
     Indication: BLADDER DYSFUNCTION
  6. REBIF [Suspect]
     Indication: MULTIPLE SCLEROSIS
     Route: 058
     Dates: start: 20110531, end: 20111024

REACTIONS (6)
  - WHITE BLOOD CELL COUNT DECREASED [None]
  - LABORATORY TEST ABNORMAL [None]
  - THYROID FUNCTION TEST ABNORMAL [None]
  - PLATELET COUNT DECREASED [None]
  - CARDIAC FAILURE CONGESTIVE [None]
  - RENAL IMPAIRMENT [None]
